FAERS Safety Report 12948687 (Version 2)
Quarter: 2016Q4

REPORT INFORMATION
  Report Type: Spontaneous
  Country: GB (occurrence: GB)
  Receive Date: 20161117
  Receipt Date: 20161117
  Transmission Date: 20170207
  Serious: Yes (Disabling)
  Sender: FDA-Public Use
  Company Number: GB-CIPLA LTD.-2016GB21102

PATIENT

DRUGS (2)
  1. EVOREL SEQUI [Concomitant]
     Active Substance: ESTRADIOL\NORETHINDRONE ACETATE
     Indication: MENOPAUSAL SYMPTOMS
     Dosage: UNK
     Route: 061
     Dates: start: 20131223
  2. CITALOPRAM [Suspect]
     Active Substance: CITALOPRAM HYDROBROMIDE
     Indication: DEPRESSION
     Dosage: 20 MG, UNK
     Route: 048
     Dates: start: 20151218, end: 20161004

REACTIONS (4)
  - Ageusia [Recovering/Resolving]
  - Abnormal loss of weight [Recovering/Resolving]
  - Anosmia [Recovering/Resolving]
  - Hypoaesthesia [Recovering/Resolving]

NARRATIVE: CASE EVENT DATE: 201502
